FAERS Safety Report 5713842-7 (Version None)
Quarter: 2008Q2

REPORT INFORMATION
  Report Type: 
  Country: None (occurrence: None)
  Receive Date: 20080421
  Receipt Date: 20080411
  Transmission Date: 20081010
  Serious: Yes (Other)
  Sender: FDA-Public Use
  Company Number: 2008AP000302

PATIENT
  Age: 41 Year
  Sex: Male

DRUGS (16)
  1. PAROXETINE HCL [Suspect]
     Indication: DRUG USE FOR UNKNOWN INDICATION
     Dosage: PO; QD; 20 MG;TAB;PO;QD; TAB;PO;QD
     Route: 048
     Dates: start: 20050728
  2. PAROXETINE HCL [Suspect]
     Indication: DRUG USE FOR UNKNOWN INDICATION
     Dosage: PO; QD; 20 MG;TAB;PO;QD; TAB;PO;QD
     Route: 048
     Dates: start: 20050830
  3. PAROXETINE HCL [Suspect]
     Indication: DRUG USE FOR UNKNOWN INDICATION
     Dosage: PO; QD; 20 MG;TAB;PO;QD; TAB;PO;QD
     Route: 048
     Dates: start: 20051005
  4. PAROXETINE HCL [Suspect]
     Indication: DRUG USE FOR UNKNOWN INDICATION
     Dosage: PO; QD; 20 MG;TAB;PO;QD; TAB;PO;QD
     Route: 048
     Dates: start: 20051027
  5. PAROXETINE HCL [Suspect]
     Indication: DRUG USE FOR UNKNOWN INDICATION
     Dosage: PO; QD; 20 MG;TAB;PO;QD; TAB;PO;QD
     Route: 048
     Dates: start: 20051128
  6. PAROXETINE HCL [Suspect]
     Indication: DRUG USE FOR UNKNOWN INDICATION
     Dosage: PO; QD; 20 MG;TAB;PO;QD; TAB;PO;QD
     Route: 048
     Dates: start: 20051220
  7. PAROXETINE HCL [Suspect]
     Indication: DRUG USE FOR UNKNOWN INDICATION
     Dosage: PO; QD; 20 MG;TAB;PO;QD; TAB;PO;QD
     Route: 048
     Dates: start: 20060123
  8. PAROXETINE HCL [Suspect]
     Indication: DRUG USE FOR UNKNOWN INDICATION
     Dosage: PO; QD; 20 MG;TAB;PO;QD; TAB;PO;QD
     Route: 048
     Dates: start: 20060220
  9. PAROXETINE HCL [Suspect]
     Indication: DRUG USE FOR UNKNOWN INDICATION
     Dosage: PO; QD; 20 MG;TAB;PO;QD; TAB;PO;QD
     Route: 048
     Dates: start: 20060320
  10. PAROXETINE HCL [Suspect]
     Indication: DRUG USE FOR UNKNOWN INDICATION
     Dosage: PO; QD; 20 MG;TAB;PO;QD; TAB;PO;QD
     Route: 048
     Dates: start: 20060410
  11. PAROXETINE HCL [Suspect]
     Indication: DRUG USE FOR UNKNOWN INDICATION
     Dosage: PO; QD; 20 MG;TAB;PO;QD; TAB;PO;QD
     Route: 048
     Dates: start: 20060410
  12. PAROXETINE HCL [Suspect]
     Indication: DRUG USE FOR UNKNOWN INDICATION
     Dosage: PO; QD; 20 MG;TAB;PO;QD; TAB;PO;QD
     Route: 048
     Dates: start: 20060516
  13. PAROXETINE HCL [Suspect]
     Indication: DRUG USE FOR UNKNOWN INDICATION
     Dosage: PO; QD; 20 MG;TAB;PO;QD; TAB;PO;QD
     Route: 048
     Dates: start: 20060516
  14. PAROXETINE HCL [Suspect]
     Indication: DRUG USE FOR UNKNOWN INDICATION
     Dosage: PO; QD; 20 MG;TAB;PO;QD; TAB;PO;QD
     Route: 048
     Dates: start: 20060623
  15. PAROXETINE HCL [Suspect]
     Indication: DRUG USE FOR UNKNOWN INDICATION
     Dosage: PO; QD; 20 MG;TAB;PO;QD; TAB;PO;QD
     Route: 048
     Dates: start: 20060720
  16. PAROXETINE HCL [Suspect]
     Indication: DRUG USE FOR UNKNOWN INDICATION
     Dosage: PO; QD; 20 MG;TAB;PO;QD; TAB;PO;QD
     Route: 048
     Dates: start: 20060802

REACTIONS (14)
  - AGGRESSION [None]
  - AGITATION [None]
  - DEPRESSED MOOD [None]
  - DRUG WITHDRAWAL SYNDROME [None]
  - EMOTIONAL DISTRESS [None]
  - HEADACHE [None]
  - INJURY [None]
  - NAUSEA [None]
  - PANIC ATTACK [None]
  - PSYCHIATRIC SYMPTOM [None]
  - SELF-INJURIOUS IDEATION [None]
  - SUICIDAL IDEATION [None]
  - TEARFULNESS [None]
  - TREMOR [None]
